FAERS Safety Report 8903360 (Version 2)
Quarter: 2013Q1

REPORT INFORMATION
  Report Type: Spontaneous
  Country: DE (occurrence: DE)
  Receive Date: 20121111
  Receipt Date: 20130118
  Transmission Date: 20140127
  Serious: Yes (Hospitalization, Other)
  Sender: FDA-Public Use
  Company Number: DE-AMGEN-DEUSP2012071387

PATIENT
  Age: 77 Year
  Sex: Female
  Weight: 52 kg

DRUGS (3)
  1. PROLIA [Suspect]
     Indication: OSTEOPOROSIS POSTMENOPAUSAL
     Dosage: 1 AMPULE, Q6MO
     Route: 058
     Dates: start: 20110406, end: 20120404
  2. BONVIVA [Suspect]
     Indication: OSTEOPOROSIS
     Dosage: 1 AMPULE (3MG/3ML) Q3MO
     Route: 042
     Dates: start: 2009, end: 20101115
  3. DEKRISTOL [Concomitant]
     Indication: OSTEOPOROSIS
     Dosage: 20000 UNK, QWK
     Route: 048
     Dates: start: 2009

REACTIONS (1)
  - Osteonecrosis of jaw [Not Recovered/Not Resolved]
